FAERS Safety Report 13183849 (Version 2)
Quarter: 2017Q1

REPORT INFORMATION
  Report Type: Spontaneous
  Country: US (occurrence: US)
  Receive Date: 20170203
  Receipt Date: 20170327
  Transmission Date: 20170428
  Serious: Yes (Disabling, Other)
  Sender: FDA-Public Use
  Company Number: US-WEST-WARD PHARMACEUTICALS CORP.-US-H14001-17-00219

PATIENT
  Sex: Female

DRUGS (1)
  1. BUTALBITAL, ASPIRIN, AND CAFFEINE [Suspect]
     Active Substance: ASPIRIN\BUTALBITAL\CAFFEINE
     Indication: TENSION HEADACHE
     Route: 065

REACTIONS (4)
  - Migraine [Unknown]
  - Pain [Unknown]
  - Hypertension [Unknown]
  - Spinal column injury [Unknown]

NARRATIVE: CASE EVENT DATE: 2008
